FAERS Safety Report 6082473-4 (Version None)
Quarter: 2009Q1

REPORT INFORMATION
  Report Type: 
  Country: None (occurrence: None)
  Receive Date: 20090130
  Receipt Date: 20081105
  Transmission Date: 20090719
  Serious: Yes (Hospitalization)
  Sender: FDA-Public Use
  Company Number: 8038976

PATIENT
  Age: 22 Year
  Sex: Female

DRUGS (10)
  1. KEPPRA [Suspect]
     Indication: EPILEPSY
     Dosage: 1500 MG 2/D
     Dates: start: 20030101
  2. KEPPRA [Suspect]
     Indication: EPILEPSY
     Dosage: 1000 MG 2/D
  3. LACOSAMIDE [Suspect]
     Indication: EPILEPSY
     Dosage: 300 MG 2/D PO
     Route: 048
     Dates: start: 20050502
  4. IBUPROFEN [Concomitant]
  5. EXCARBAZEPINE [Concomitant]
  6. VENLAFAXINE HCL [Concomitant]
  7. LEVOTHYROXINE SODIUM [Concomitant]
  8. MEDROXYPROGESTERONE [Concomitant]
  9. RIZATRIPTAN BENZOATE [Concomitant]
  10. VENLAFAXINE HYDROCHLORIDE [Concomitant]

REACTIONS (2)
  - DEPRESSION [None]
  - SUICIDE ATTEMPT [None]
